FAERS Safety Report 6789787-0 (Version None)
Quarter: 2010Q2

REPORT INFORMATION
  Report Type: 
  Country: None (occurrence: None)
  Receive Date: 20100624
  Receipt Date: 20100615
  Transmission Date: 20101027
  Serious: Yes (Other)
  Sender: FDA-Public Use
  Company Number: ES-JNJFOC-20100605618

PATIENT
  Age: 28 Year
  Sex: Female

DRUGS (9)
  1. TOPAMAX [Suspect]
     Indication: DRUG USE FOR UNKNOWN INDICATION
     Route: 048
  2. TOPAMAX [Suspect]
     Route: 048
  3. FLUOXETINA [Interacting]
     Indication: DEPRESSION
     Route: 048
  4. FLUOXETINA [Interacting]
     Route: 048
  5. ETUMINA [Interacting]
     Indication: PERSONALITY DISORDER
     Route: 048
  6. ETUMINA [Interacting]
     Route: 048
  7. DEPRAX [Interacting]
     Indication: DEPRESSION
     Route: 048
  8. DEPRAX [Interacting]
     Route: 048
  9. FUROSEMIDE [Suspect]
     Indication: DRUG USE FOR UNKNOWN INDICATION
     Route: 065

REACTIONS (4)
  - DRUG INTERACTION [None]
  - MULTIPLE DRUG OVERDOSE INTENTIONAL [None]
  - SOMNOLENCE [None]
  - SUICIDE ATTEMPT [None]
